FAERS Safety Report 13565525 (Version 19)
Quarter: 2020Q2

REPORT INFORMATION
  Report Type: Spontaneous
  Country: US (occurrence: US)
  Receive Date: 20170519
  Receipt Date: 20200511
  Transmission Date: 20200713
  Serious: Yes (Hospitalization)
  Sender: FDA-Public Use
  Company Number: US-ACTELION-A-US2017-154147

PATIENT
  Age: 46 Year
  Sex: Female
  Weight: 63.95 kg

DRUGS (9)
  1. OPSUMIT [Suspect]
     Active Substance: MACITENTAN
     Indication: PULMONARY ARTERIAL HYPERTENSION
     Dosage: 10 MG, QD
     Route: 048
     Dates: start: 20160201
  2. JOLIVETTE [Concomitant]
     Active Substance: NORETHINDRONE
  3. NORETHINDRONE. [Concomitant]
     Active Substance: NORETHINDRONE
  4. VELETRI [Suspect]
     Active Substance: EPOPROSTENOL
     Dosage: 45 NG/KG, PER MIN
     Route: 042
  5. ADCIRCA [Concomitant]
     Active Substance: TADALAFIL
  6. VELETRI [Suspect]
     Active Substance: EPOPROSTENOL
     Indication: PULMONARY ARTERIAL HYPERTENSION
     Dosage: 45 NG/KG, PER MIN
     Route: 042
  7. DIGOX [Concomitant]
     Active Substance: DIGOXIN
  8. DOXAZOSIN [Concomitant]
     Active Substance: DOXAZOSIN MESYLATE
  9. XARELTO [Concomitant]
     Active Substance: RIVAROXABAN

REACTIONS (19)
  - Nasopharyngitis [Unknown]
  - Flushing [Unknown]
  - Vomiting [Unknown]
  - Nausea [Unknown]
  - Malaise [Unknown]
  - Dysphagia [Unknown]
  - Chronic gastritis [Not Recovered/Not Resolved]
  - Diarrhoea [Unknown]
  - Dyspnoea exertional [Unknown]
  - Bronchitis [Unknown]
  - Oropharyngeal pain [Unknown]
  - Device alarm issue [Recovered/Resolved]
  - Rash [Unknown]
  - Influenza [Recovered/Resolved]
  - Upper respiratory tract infection [Unknown]
  - Device occlusion [Recovered/Resolved]
  - Rhinorrhoea [Unknown]
  - Unevaluable event [Unknown]
  - Product dose omission [Unknown]

NARRATIVE: CASE EVENT DATE: 201801
